FAERS Safety Report 5851882-8 (Version None)
Quarter: 2008Q3

REPORT INFORMATION
  Report Type: 
  Country: None (occurrence: None)
  Receive Date: 20080820
  Receipt Date: 20080808
  Transmission Date: 20090109
  Serious: Yes (Congenital Anomaly, Other)
  Sender: FDA-Public Use
  Company Number: US-PFIZER INC-2008066924

PATIENT
  Sex: Female
  Weight: 72.727 kg

DRUGS (13)
  1. REVATIO [Suspect]
     Indication: PULMONARY HYPERTENSION
  2. CARVEDILOL [Concomitant]
  3. PLAVIX [Concomitant]
  4. FUROSEMIDE [Concomitant]
  5. PRAVASTATIN [Concomitant]
  6. FLUOXETINE [Concomitant]
  7. LORAZEPAM [Concomitant]
  8. LISINOPRIL [Concomitant]
  9. ALL OTHER THERAPEUTIC PRODUCTS [Concomitant]
  10. SILVER [Concomitant]
  11. VITAMIN TAB [Concomitant]
  12. OXYGEN [Concomitant]
  13. ALBUTEROL [Concomitant]

REACTIONS (4)
  - DYSPNOEA [None]
  - HAEMOGLOBIN DECREASED [None]
  - HYPOTENSION [None]
  - OXYGEN SATURATION DECREASED [None]
